FAERS Safety Report 16461007 (Version 2)
Quarter: 2021Q3

REPORT INFORMATION
  Report Type: Report from Study
  Country: GT (occurrence: GT)
  Receive Date: 20190620
  Receipt Date: 20210716
  Transmission Date: 20211014
  Serious: Yes (Other)
  Sender: FDA-Public Use
  Company Number: PHHY2019GT141934

PATIENT
  Age: 64 Year
  Sex: Female

DRUGS (2)
  1. CO?DIOVAN [Suspect]
     Active Substance: HYDROCHLOROTHIAZIDE\VALSARTAN
     Indication: HYPERTENSION
     Dosage: 1 DF, BID (ONE IN THE MORNING AND ONE AT NIGHT)
     Route: 065
  2. CO?DIOVAN [Suspect]
     Active Substance: HYDROCHLOROTHIAZIDE\VALSARTAN
     Indication: OXYGEN SATURATION DECREASED

REACTIONS (7)
  - Hypertension [Unknown]
  - Angina unstable [Unknown]
  - Poor peripheral circulation [Unknown]
  - Headache [Unknown]
  - Hypoxia [Unknown]
  - Drug intolerance [Unknown]
  - Arthritis [Unknown]
